FAERS Safety Report 12052478 (Version 1)
Quarter: 2016Q1

REPORT INFORMATION
  Report Type: Spontaneous
  Country: US (occurrence: None)
  Receive Date: 20160208
  Receipt Date: 20160208
  Transmission Date: 20160526
  Serious: Yes (Hospitalization)
  Sender: FDA-Public Use
  Company Number: None

PATIENT
  Age: 57 Year
  Sex: Female
  Weight: 56.9 kg

DRUGS (3)
  1. PASIREOTIDE [Suspect]
     Active Substance: PASIREOTIDE
     Indication: CONGENITAL CYSTIC KIDNEY DISEASE
     Dosage: 1 INJECTION EVERY 28 DAYS INTRAMUSCULAR
     Route: 030
     Dates: start: 20140210, end: 20151222
  2. MORPHINE [Concomitant]
     Active Substance: MORPHINE
  3. SPIRONOLACTONE [ALDACTONE] [Concomitant]

REACTIONS (4)
  - Abdominal pain [None]
  - Cyst rupture [None]
  - Pain [None]
  - Infection [None]

NARRATIVE: CASE EVENT DATE: 20160106
